FAERS Safety Report 20207313 (Version 2)
Quarter: 2024Q1

REPORT INFORMATION
  Report Type: Spontaneous
  Country: US (occurrence: US)
  Receive Date: 20211220
  Receipt Date: 20240201
  Transmission Date: 20240410
  Serious: No
  Sender: FDA-Public Use
  Company Number: US-NOVEN PHARMACEUTICALS, INC.-2021US001773

PATIENT
  Sex: Female

DRUGS (3)
  1. MINIVELLE [Suspect]
     Active Substance: ESTRADIOL
     Indication: Headache
     Dosage: 0.075MG, 2/WEEK
     Route: 062
     Dates: start: 2017
  2. MINIVELLE [Suspect]
     Active Substance: ESTRADIOL
     Indication: Migraine
  3. MINIVELLE [Suspect]
     Active Substance: ESTRADIOL
     Indication: Off label use

REACTIONS (2)
  - Headache [Recovered/Resolved]
  - Off label use [Not Recovered/Not Resolved]

NARRATIVE: CASE EVENT DATE: 20210228
